FAERS Safety Report 12953560 (Version 1)
Quarter: 2016Q4

REPORT INFORMATION
  Report Type: Report from Study
  Country: GB (occurrence: GB)
  Receive Date: 20161118
  Receipt Date: 20161118
  Transmission Date: 20170207
  Serious: Yes (Other)
  Sender: FDA-Public Use
  Company Number: GB-CONCORDIA PHARMACEUTICALS INC.-GSH201611-005808

PATIENT
  Age: 58 Year
  Sex: Female

DRUGS (3)
  1. PREDNISOLONE. [Suspect]
     Active Substance: PREDNISOLONE
  2. MYCOPHENOLATE MOFETIL. [Suspect]
     Active Substance: MYCOPHENOLATE MOFETIL
  3. PREDNISOLONE. [Suspect]
     Active Substance: PREDNISOLONE

REACTIONS (2)
  - Liver abscess [Recovered/Resolved]
  - Klebsiella sepsis [Recovered/Resolved]
